FAERS Safety Report 6406381-1 (Version None)
Quarter: 2009Q4

REPORT INFORMATION
  Report Type: 
  Country: None (occurrence: None)
  Receive Date: 20091014
  Receipt Date: 20091005
  Transmission Date: 20100525
  Serious: Yes (Hospitalization)
  Sender: FDA-Public Use
  Company Number: ADR39242009

PATIENT
  Age: 77 Year
  Sex: Female

DRUGS (8)
  1. SIMVASTATIN [Suspect]
  2. ADALAT [Concomitant]
  3. ADCAL-D3 [Concomitant]
  4. ALENDRONIC ACID [Concomitant]
  5. ANASTROZOLE [Concomitant]
  6. LEVOTHYROXINE SODIUM [Concomitant]
  7. LISINOPRIL [Concomitant]
  8. SOTALOL HCL [Concomitant]

REACTIONS (3)
  - FALL [None]
  - LOSS OF CONSCIOUSNESS [None]
  - PANCREATITIS ACUTE [None]
